FAERS Safety Report 6838978-9 (Version None)
Quarter: 2010Q3

REPORT INFORMATION
  Report Type: 
  Country: None (occurrence: None)
  Receive Date: 20100713
  Receipt Date: 20080301
  Transmission Date: 20110219
  Serious: No
  Sender: FDA-Public Use
  Company Number: US-PFIZER INC-2007042600

PATIENT
  Sex: Female
  Weight: 58.6 kg

DRUGS (6)
  1. CHANTIX [Suspect]
     Indication: SMOKING CESSATION THERAPY
     Dates: start: 20070521
  2. ALBUTEROL [Interacting]
     Indication: ASTHMA
  3. ADVAIR DISKUS 100/50 [Concomitant]
     Indication: ASTHMA
  4. PREDNISONE [Concomitant]
  5. MONTELUKAST SODIUM [Concomitant]
     Indication: ASTHMA
  6. NASACORT [Concomitant]
     Indication: ASTHMA

REACTIONS (4)
  - ASTHMA [None]
  - DIZZINESS [None]
  - DRUG INTERACTION [None]
  - FEELING ABNORMAL [None]
